FAERS Safety Report 10025429 (Version 1)
Quarter: 2014Q1

REPORT INFORMATION
  Report Type: Spontaneous
  Country: JP (occurrence: JP)
  Receive Date: 20140320
  Receipt Date: 20140320
  Transmission Date: 20141002
  Serious: Yes (Other)
  Sender: FDA-Public Use
  Company Number: JP-JNJFOC-20140309711

PATIENT
  Age: 71 Year
  Sex: Female

DRUGS (5)
  1. DUROTEP MT [Suspect]
     Indication: CANCER PAIN
     Route: 062
  2. FENTANYL CITRATE [Suspect]
     Indication: CANCER PAIN
     Dosage: GRADUAL DECREASE
     Route: 041
  3. FENTANYL CITRATE [Suspect]
     Indication: CANCER PAIN
     Route: 041
  4. OXYCONTIN [Concomitant]
     Indication: CANCER PAIN
     Route: 048
  5. OXYCONTIN [Concomitant]
     Indication: CANCER PAIN
     Route: 041

REACTIONS (2)
  - Aspiration [Unknown]
  - Inadequate analgesia [Unknown]
